FAERS Safety Report 26035474 (Version 1)
Quarter: 2025Q4

REPORT INFORMATION
  Report Type: Spontaneous
  Country: US (occurrence: US)
  Receive Date: 20251112
  Receipt Date: 20251112
  Transmission Date: 20260117
  Serious: Yes (Death, Hospitalization)
  Sender: BAYER HEALTHCARE PHARMACEUTICALS INC.
  Company Number: US-BAYER-2025A148291

PATIENT
  Age: 55 Year
  Sex: Male

DRUGS (1)
  1. NUBEQA [Suspect]
     Active Substance: DAROLUTAMIDE
     Dosage: UNK
     Dates: end: 20251016

REACTIONS (4)
  - Hospitalisation [None]
  - Death [Fatal]
  - Dysphagia [None]
  - Wrong technique in product usage process [None]

NARRATIVE: CASE EVENT DATE: 20250101
